FAERS Safety Report 11629117 (Version 1)
Quarter: 2015Q4

REPORT INFORMATION
  Report Type: Other
  Country: JP (occurrence: JP)
  Receive Date: 20151014
  Receipt Date: 20151014
  Transmission Date: 20160304
  Serious: Yes (Other)
  Sender: FDA-Public Use
  Company Number: JP-WARNER CHILCOTT, LLC-1042949

PATIENT
  Age: 87 Year
  Sex: Female

DRUGS (1)
  1. ACTONEL [Suspect]
     Active Substance: RISEDRONATE SODIUM
     Route: 048

REACTIONS (12)
  - Ulna fracture [None]
  - Fall [None]
  - Fall [Unknown]
  - Ulna fracture [Unknown]
  - Arthralgia [Unknown]
  - Atypical fracture [None]
  - Osteosclerosis [None]
  - Joint swelling [Unknown]
  - Osteosclerosis [Unknown]
  - Joint swelling [None]
  - Atypical fracture [Unknown]
  - Arthralgia [None]
